FAERS Safety Report 9075820 (Version 2)
Quarter: 2013Q2

REPORT INFORMATION
  Report Type: Spontaneous
  Country: US (occurrence: US)
  Receive Date: 20130201
  Receipt Date: 20130522
  Transmission Date: 20140414
  Serious: No
  Sender: FDA-Public Use
  Company Number: US-B.I. PHARMACEUTICALS,INC./RIDGEFIELD-2013-BI-01381BP

PATIENT
  Age: 88 Year
  Sex: Female
  Weight: 54 kg

DRUGS (14)
  1. PRADAXA [Suspect]
     Indication: ATRIAL FIBRILLATION
     Dosage: 150 MG
     Route: 048
     Dates: start: 201211
  2. PRADAXA [Suspect]
     Dosage: 75 MG
     Route: 048
     Dates: start: 2012
  3. DIGOXIN [Concomitant]
     Dosage: 0.125 MG
     Route: 048
  4. REQUIP [Concomitant]
     Indication: RESTLESS LEGS SYNDROME
     Route: 048
  5. LEVOTHYROXINE [Concomitant]
     Dosage: 25 MCG
     Route: 048
  6. LOPRESSOR [Concomitant]
     Dosage: 100 MG
     Route: 048
  7. BENTYL [Concomitant]
     Route: 048
  8. ANTIVERT [Concomitant]
     Route: 048
  9. CALCIUM PLUS D [Concomitant]
     Route: 048
  10. XANAX [Concomitant]
     Dosage: 0.25 MG
     Route: 048
  11. KEPPRA [Concomitant]
     Route: 048
  12. FUROSEMIDE [Concomitant]
     Route: 048
  13. HYDROCODONE/ACETAMINOPHEN [Concomitant]
     Route: 048
  14. AK-CON EYE DROPS [Concomitant]

REACTIONS (9)
  - Local swelling [Not Recovered/Not Resolved]
  - Paraesthesia [Not Recovered/Not Resolved]
  - Pain in extremity [Not Recovered/Not Resolved]
  - Hypoaesthesia [Not Recovered/Not Resolved]
  - Musculoskeletal stiffness [Not Recovered/Not Resolved]
  - Pain in extremity [Not Recovered/Not Resolved]
  - Musculoskeletal stiffness [Not Recovered/Not Resolved]
  - Dyspnoea [Not Recovered/Not Resolved]
  - Pain in extremity [Not Recovered/Not Resolved]
